FAERS Safety Report 5065288-5 (Version None)
Quarter: 2006Q3

REPORT INFORMATION
  Report Type: 
  Country: None (occurrence: None)
  Receive Date: 20060707
  Receipt Date: 20050921
  Transmission Date: 20061208
  Serious: Yes (Hospitalization)
  Sender: FDA-Public Use
  Company Number: SUS1-2005-00641

PATIENT
  Age: 24 Year
  Sex: Male

DRUGS (7)
  1. PENTASA [Suspect]
     Indication: CROHN'S DISEASE
     Dosage: SEE IMAGE
     Route: 048
     Dates: start: 20050625, end: 20050716
  2. PENTASA [Suspect]
     Indication: CROHN'S DISEASE
     Dosage: SEE IMAGE
     Route: 048
     Dates: start: 20050906, end: 20050909
  3. PREDNISOLONE [Suspect]
     Indication: CROHN'S DISEASE
     Dosage: SEE IMAGE
     Route: 048
     Dates: start: 20050101, end: 20050101
  4. PREDNISOLONE [Suspect]
     Indication: CROHN'S DISEASE
     Dosage: SEE IMAGE
     Route: 048
     Dates: start: 20050625, end: 20050628
  5. PREDNISOLONE [Suspect]
     Indication: CROHN'S DISEASE
     Dosage: SEE IMAGE
     Route: 048
     Dates: start: 20050629, end: 20050704
  6. PREDNISOLONE [Suspect]
     Indication: CROHN'S DISEASE
     Dosage: SEE IMAGE
     Route: 048
     Dates: start: 20050705, end: 20050711
  7. PREDNISOLONE [Suspect]
     Indication: CROHN'S DISEASE
     Dosage: SEE IMAGE
     Route: 048
     Dates: start: 20050712, end: 20050716

REACTIONS (1)
  - PERICARDITIS [None]
